FAERS Safety Report 8532741-9 (Version None)
Quarter: 2012Q3

REPORT INFORMATION
  Report Type: 
  Country: None (occurrence: None)
  Receive Date: 20120724
  Receipt Date: 20120718
  Transmission Date: 20120928
  Serious: Yes (Other)
  Sender: FDA-Public Use
  Company Number: PHHY2012BR054075

PATIENT
  Sex: Female

DRUGS (4)
  1. SIMVASTATIN [Concomitant]
     Indication: BLOOD CHOLESTEROL
     Dosage: 1 DF, (1 TAB A DAY)
     Route: 048
  2. BUDESONIDE [Concomitant]
     Indication: RHINITIS ALLERGIC
     Dosage: 1 DF, QD
     Route: 045
  3. CAPTOPRIL [Concomitant]
     Indication: HYPERTENSION
     Dosage: 25 MG,(3 TABLETS DAILY)
     Route: 048
  4. FORMOTEROL FUMARATE [Suspect]
     Indication: ASTHMA
     Dosage: 1 DF, QD

REACTIONS (8)
  - COUGH [None]
  - DYSPNOEA [None]
  - MALAISE [None]
  - CHEST PAIN [None]
  - WHEEZING [None]
  - NASOPHARYNGITIS [None]
  - LUNG DISORDER [None]
  - NERVOUSNESS [None]
